FAERS Safety Report 7255481-5 (Version None)
Quarter: 2011Q1

REPORT INFORMATION
  Report Type: 
  Country: None (occurrence: None)
  Receive Date: 20110129
  Receipt Date: 20100315
  Transmission Date: 20110831
  Serious: No
  Sender: FDA-Public Use
  Company Number: US-ABBOTT-10P-163-0632972-00

PATIENT
  Sex: Female

DRUGS (1)
  1. HUMIRA [Suspect]
     Indication: RHEUMATOID ARTHRITIS
     Route: 058
     Dates: start: 20100221

REACTIONS (6)
  - ARTHRALGIA [None]
  - JOINT SWELLING [None]
  - SINUSITIS [None]
  - NAUSEA [None]
  - GAIT DISTURBANCE [None]
  - PYREXIA [None]
